FAERS Safety Report 5290303-3 (Version None)
Quarter: 2007Q2

REPORT INFORMATION
  Report Type: 
  Country: None (occurrence: None)
  Receive Date: 20070409
  Receipt Date: 20070403
  Transmission Date: 20071010
  Serious: Yes (Death)
  Sender: FDA-Public Use
  Company Number: CA-ELI_LILLY_AND_COMPANY-CA200704000923

PATIENT
  Age: 65 Year
  Sex: Male

DRUGS (1)
  1. ZYPREXA [Suspect]
     Indication: BIPOLAR DISORDER

REACTIONS (1)
  - CARDIAC DEATH [None]
